FAERS Safety Report 21503930 (Version 4)
Quarter: 2023Q2

REPORT INFORMATION
  Report Type: Report from Study
  Country: US (occurrence: US)
  Receive Date: 20221025
  Receipt Date: 20230619
  Transmission Date: 20230722
  Serious: Yes (Hospitalization)
  Sender: FDA-Public Use
  Company Number: US-TAKEDA-2022TUS061325

PATIENT
  Sex: Female
  Weight: 45 kg

DRUGS (5)
  1. TEDUGLUTIDE [Suspect]
     Active Substance: TEDUGLUTIDE
     Indication: Short-bowel syndrome
     Dosage: 2.245 MILLIGRAM, QD
     Route: 058
  2. TEDUGLUTIDE [Suspect]
     Active Substance: TEDUGLUTIDE
     Indication: Short-bowel syndrome
     Dosage: 2.245 MILLIGRAM, QD
     Route: 058
  3. TEDUGLUTIDE [Suspect]
     Active Substance: TEDUGLUTIDE
     Indication: Short-bowel syndrome
     Dosage: 2.245 MILLIGRAM, QD
     Route: 058
  4. TEDUGLUTIDE [Suspect]
     Active Substance: TEDUGLUTIDE
     Indication: Short-bowel syndrome
     Dosage: 2.245 MILLIGRAM, QD
     Route: 058
  5. AMOXICILLIN [Concomitant]
     Active Substance: AMOXICILLIN
     Route: 065

REACTIONS (5)
  - Hospitalisation [Unknown]
  - Diarrhoea [Recovering/Resolving]
  - Weight increased [Unknown]
  - Injection site bruising [Unknown]
  - Product dose omission issue [Unknown]
